FAERS Safety Report 7020133-3 (Version None)
Quarter: 2010Q3

REPORT INFORMATION
  Report Type: 
  Country: None (occurrence: None)
  Receive Date: 20100929
  Receipt Date: 20100915
  Transmission Date: 20110219
  Serious: Yes (Hospitalization, Other)
  Sender: FDA-Public Use
  Company Number: US-ELI_LILLY_AND_COMPANY-US201009004017

PATIENT
  Sex: Male

DRUGS (1)
  1. EFFIENT [Suspect]

REACTIONS (3)
  - BLOOD COUNT ABNORMAL [None]
  - CONDITION AGGRAVATED [None]
  - THROMBOTIC THROMBOCYTOPENIC PURPURA [None]
